FAERS Safety Report 5982359-7 (Version None)
Quarter: 2008Q4

REPORT INFORMATION
  Report Type: 
  Country: None (occurrence: None)
  Receive Date: 20081208
  Receipt Date: 20081125
  Transmission Date: 20090506
  Serious: Yes (Hospitalization)
  Sender: FDA-Public Use
  Company Number: US-BIOGENIDEC-2008BI027500

PATIENT
  Age: 48 Year
  Sex: Female

DRUGS (10)
  1. TYSABRI [Suspect]
     Indication: MULTIPLE SCLEROSIS
     Route: 042
     Dates: start: 20070917
  2. BACLOFEN [Concomitant]
  3. CALCIUM WITH VITAMIN D [Concomitant]
  4. CYMBALTA [Concomitant]
  5. FOSAMAX [Concomitant]
  6. GLUCOSAMINE [Concomitant]
  7. IBUPROFEN TABLETS [Concomitant]
  8. MIRALAX [Concomitant]
  9. MULTI-VITAMIN [Concomitant]
  10. PROVIGIL [Concomitant]

REACTIONS (1)
  - CORONARY ARTERY STENOSIS [None]
